FAERS Safety Report 6721780-6 (Version None)
Quarter: 2010Q2

REPORT INFORMATION
  Report Type: 
  Country: None (occurrence: None)
  Receive Date: 20100512
  Receipt Date: 20100506
  Transmission Date: 20101027
  Serious: Yes (Other)
  Sender: FDA-Public Use
  Company Number: DE-ASTRAZENECA-2010SE20899

PATIENT
  Sex: Male

DRUGS (2)
  1. NAROPIN [Suspect]
  2. NAROPIN [Suspect]

REACTIONS (2)
  - DYSPHAGIA [None]
  - DYSPNOEA [None]
